FAERS Safety Report 4871481-4 (Version None)
Quarter: 2005Q4

REPORT INFORMATION
  Report Type: 
  Country: None (occurrence: None)
  Receive Date: 20051229
  Receipt Date: 20051213
  Transmission Date: 20060501
  Serious: Yes (Hospitalization)
  Sender: FDA-Public Use
  Company Number: US200512001394

PATIENT
  Age: 82 Year
  Sex: Male
  Weight: 57.1 kg

DRUGS (8)
  1. GEMCITABINE HYDROCLORIDE (GEMCITABINE HYDROCHLORIDE) VIAL [Suspect]
     Indication: NON-SMALL CELL LUNG CANCER
     Dosage: 1250 MG/M2, OTHER, INTRAVENOUS
     Route: 042
     Dates: start: 20051013, end: 20051111
  2. COUMADIN [Concomitant]
  3. ATENOLOL [Concomitant]
  4. NORVASC [Concomitant]
  5. LIPITOR [Concomitant]
  6. ASA (ASPIRIN (ACETYLSALICYLIC ACID) [Concomitant]
  7. MULTIVITAMINS (ASCORBIC ACID, ERGOCALCIFEROL, FOLIC ACID, NICOTINAMIDE [Concomitant]
  8. ACETAMINOPHEN [Concomitant]

REACTIONS (3)
  - HAEMOGLOBIN DECREASED [None]
  - MUSCULAR WEAKNESS [None]
  - PNEUMONIA [None]
